FAERS Safety Report 11279248 (Version 4)
Quarter: 2016Q3

REPORT INFORMATION
  Report Type: Report from Study
  Country: BR (occurrence: BR)
  Receive Date: 20150717
  Receipt Date: 20160920
  Transmission Date: 20161109
  Serious: Yes (Other)
  Sender: FDA-Public Use
  Company Number: PHHY2015BR077027

PATIENT
  Age: 31 Year
  Sex: Female
  Weight: 52 kg

DRUGS (4)
  1. GILENYA [Suspect]
     Active Substance: FINGOLIMOD HYDROCHLORIDE
     Dosage: 0.5 MG, QD
     Route: 048
     Dates: start: 201602
  2. GILENYA [Suspect]
     Active Substance: FINGOLIMOD HYDROCHLORIDE
     Indication: MULTIPLE SCLEROSIS
     Dosage: 0.5 MG, QD
     Route: 048
     Dates: start: 20140715, end: 201506
  3. GILENYA [Suspect]
     Active Substance: FINGOLIMOD HYDROCHLORIDE
     Dosage: 0.5 MG, QD (FOR 15 DAYS)
     Route: 048
     Dates: start: 20150702
  4. GILENYA [Suspect]
     Active Substance: FINGOLIMOD HYDROCHLORIDE
     Dosage: 0.5 MG, QOD (FOR 15 DAYS)
     Route: 048
     Dates: start: 201508

REACTIONS (29)
  - Erythema [Unknown]
  - Hypotension [Unknown]
  - Asthma [Unknown]
  - Choking [Unknown]
  - Bronchospasm [Unknown]
  - Flushing [Unknown]
  - Herpes virus infection [Recovered/Resolved]
  - Prescribed underdose [Unknown]
  - Cough [Unknown]
  - Upper airway obstruction [Unknown]
  - Secretion discharge [Unknown]
  - Urinary tract infection [Recovered/Resolved]
  - Decreased immune responsiveness [Recovered/Resolved]
  - Urinary tract infection [Recovered/Resolved]
  - Pneumonia [Recovered/Resolved]
  - Respiratory tract infection [Recovered/Resolved]
  - Lymphopenia [Recovered/Resolved]
  - Nasal congestion [Not Recovered/Not Resolved]
  - Dyspnoea [Unknown]
  - Chest discomfort [Unknown]
  - Sneezing [Unknown]
  - Herpes virus infection [Recovered/Resolved]
  - Drug intolerance [Unknown]
  - Oropharyngeal pain [Not Recovered/Not Resolved]
  - Wheezing [Unknown]
  - Klebsiella infection [Recovered/Resolved]
  - Leukopenia [Recovered/Resolved]
  - Malaise [Recovering/Resolving]
  - Fungal infection [Recovered/Resolved]

NARRATIVE: CASE EVENT DATE: 201506
